FAERS Safety Report 7059554-1 (Version None)
Quarter: 2010Q4

REPORT INFORMATION
  Report Type: 
  Country: None (occurrence: None)
  Receive Date: 20101025
  Receipt Date: 20101012
  Transmission Date: 20110411
  Serious: Yes (Other)
  Sender: FDA-Public Use
  Company Number: PHHY2010US68317

PATIENT
  Age: 93 Year
  Sex: Female

DRUGS (4)
  1. DIOVAN [Suspect]
     Dosage: 160 MG, ONCE DAILY
  2. DIOVAN [Suspect]
     Dosage: TWICE DAILY
  3. METOPROLOL [Concomitant]
  4. EYE DROPS [Suspect]

REACTIONS (3)
  - CEREBROVASCULAR ACCIDENT [None]
  - COUGH [None]
  - GLAUCOMA [None]
